FAERS Safety Report 7048517-8 (Version None)
Quarter: 2010Q4

REPORT INFORMATION
  Report Type: 
  Country: None (occurrence: None)
  Receive Date: 20101007
  Receipt Date: 20101001
  Transmission Date: 20110411
  Serious: Yes (Death)
  Sender: FDA-Public Use
  Company Number: 2010US003855

PATIENT
  Age: 86 Year
  Sex: Female

DRUGS (1)
  1. AMBISOME [Suspect]
     Indication: PNEUMONIA CRYPTOCOCCAL
     Dosage: 32 MG, UID/QD, IV NOS
     Dates: start: 20100911, end: 20100915

REACTIONS (2)
  - HYPERKALAEMIA [None]
  - HYPOGLYCAEMIA [None]
